FAERS Safety Report 9068562 (Version 1)
Quarter: 2013Q1

REPORT INFORMATION
  Report Type: Report from Study
  Country: US (occurrence: US)
  Receive Date: 20130128
  Receipt Date: 20130128
  Transmission Date: 20140127
  Serious: Yes (Other)
  Sender: FDA-Public Use
  Company Number: US-ROCHE-1177489

PATIENT
  Age: 79 Year
  Sex: Female

DRUGS (6)
  1. VEMURAFENIB [Suspect]
     Indication: THYROID CANCER
     Route: 048
     Dates: start: 20121218
  2. DIOVAN [Concomitant]
  3. INOSITOL [Concomitant]
  4. INDAPAMIDE [Concomitant]
  5. LEVOXYL [Concomitant]
     Route: 048
  6. VALIUM [Concomitant]
     Route: 065

REACTIONS (4)
  - Atrial fibrillation [Recovered/Resolved]
  - Hypokalaemia [Recovered/Resolved]
  - Heart rate increased [Unknown]
  - Nausea [Unknown]
